FAERS Safety Report 12463337 (Version 1)
Quarter: 2016Q2

REPORT INFORMATION
  Report Type: Spontaneous
  Country: US (occurrence: None)
  Receive Date: 20160613
  Receipt Date: 20160613
  Transmission Date: 20160815
  Serious: Yes (Disabling)
  Sender: FDA-Public Use
  Company Number: None

PATIENT
  Age: 37 Year
  Sex: Female
  Weight: 83.92 kg

DRUGS (7)
  1. CLINDAMYCIN [Suspect]
     Active Substance: CLINDAMYCIN\CLINDAMYCIN PHOSPHATE
     Indication: TRAUMATIC DELIVERY
     Route: 042
     Dates: start: 20160130, end: 20160607
  2. LEXAPRO [Concomitant]
     Active Substance: ESCITALOPRAM OXALATE
  3. PRENATAL VITAMINS [Concomitant]
     Active Substance: VITAMINS
  4. PROBIOTICS [Concomitant]
     Active Substance: PROBIOTICS NOS
  5. VANCOMYCIN [Concomitant]
     Active Substance: VANCOMYCIN
  6. CLINDAMYCIN [Suspect]
     Active Substance: CLINDAMYCIN\CLINDAMYCIN PHOSPHATE
     Indication: EPISIOTOMY
     Route: 042
     Dates: start: 20160130, end: 20160607
  7. CLINDAMYCIN [Suspect]
     Active Substance: CLINDAMYCIN\CLINDAMYCIN PHOSPHATE
     Indication: PUERPERAL INFECTION
     Route: 042
     Dates: start: 20160130, end: 20160607

REACTIONS (1)
  - Clostridium difficile infection [None]

NARRATIVE: CASE EVENT DATE: 20160201
